FAERS Safety Report 6191086-5 (Version None)
Quarter: 2009Q2

REPORT INFORMATION
  Report Type: 
  Country: None (occurrence: None)
  Receive Date: 20090513
  Receipt Date: 20090513
  Transmission Date: 20091009
  Serious: Yes (Hospitalization, Disabling)
  Sender: FDA-Public Use
  Company Number: None

PATIENT
  Sex: Female
  Weight: 54.4316 kg

DRUGS (1)
  1. MERCAPTOPURINE [Suspect]
     Indication: CROHN'S DISEASE
     Dosage: ONE PILL EVERY DAY
     Dates: start: 20040101, end: 20050101

REACTIONS (2)
  - BLOOD DISORDER [None]
  - HAEMOGLOBIN DECREASED [None]
